FAERS Safety Report 5353809-4 (Version None)
Quarter: 2007Q2

REPORT INFORMATION
  Report Type: 
  Country: None (occurrence: None)
  Receive Date: 20070608
  Receipt Date: 20070608
  Transmission Date: 20071010
  Serious: Yes (Other)
  Sender: FDA-Public Use
  Company Number: None

PATIENT
  Sex: Male
  Weight: 81.6475 kg

DRUGS (1)
  1. ZOCOR [Suspect]
     Indication: BLOOD CHOLESTEROL INCREASED
     Dates: start: 20051001, end: 20060701

REACTIONS (4)
  - CLUSTER HEADACHE [None]
  - DIZZINESS [None]
  - MYALGIA [None]
  - VISUAL DISTURBANCE [None]
